FAERS Safety Report 9687954 (Version 3)
Quarter: 2014Q1

REPORT INFORMATION
  Report Type: Spontaneous
  Country: JP (occurrence: JP)
  Receive Date: 20131114
  Receipt Date: 20140107
  Transmission Date: 20141002
  Serious: Yes (Other)
  Sender: FDA-Public Use
  Company Number: PHHY2013JP107122

PATIENT
  Age: 83 Year
  Sex: Male
  Weight: 46 kg

DRUGS (10)
  1. EXELON PATCH [Suspect]
     Indication: DEMENTIA ALZHEIMER^S TYPE
     Dosage: 4.5 MG, DAILY
     Route: 062
     Dates: start: 20120814
  2. EXELON PATCH [Suspect]
     Dosage: 18 MG, DAILY
     Route: 062
     Dates: end: 20130731
  3. AMLODIPINE BESYLATE [Suspect]
     Indication: HYPERTENSION
     Dosage: 2.5 MG, DAILY
     Route: 048
     Dates: start: 200604
  4. CEREDIST [Suspect]
     Indication: SPINOCEREBELLAR DISORDER
     Dosage: 10 MG, DAILY
     Route: 048
     Dates: start: 200203
  5. BAYASPIRIN [Suspect]
     Indication: CEREBRAL INFARCTION
     Dosage: 100 MG, DAILY
     Route: 048
     Dates: start: 200604
  6. LENIMEC [Suspect]
     Indication: HYPERTENSION
     Dosage: 5 MG, DAILY
     Route: 048
     Dates: start: 200607
  7. DIART [Suspect]
     Indication: CARDIAC FAILURE
     Dosage: 60 MG, DAILY
     Route: 048
     Dates: start: 20061013
  8. MAGMITT [Suspect]
     Indication: CONSTIPATION
     Dosage: 1000 MG, DAILY
     Route: 048
     Dates: start: 200604
  9. WARFARIN SODIUM [Concomitant]
     Indication: CEREBRAL INFARCTION
     Dosage: 1.75 MG, DAILY
     Route: 048
     Dates: start: 200604
  10. C CYSTEN [Concomitant]
     Indication: BRONCHITIS CHRONIC
     Dosage: 750 MG, DAILY
     Route: 048
     Dates: start: 20070803

REACTIONS (10)
  - Altered state of consciousness [Recovered/Resolved]
  - Hypotension [Recovered/Resolved]
  - Pallor [Not Recovered/Not Resolved]
  - Cold sweat [Unknown]
  - Faecal incontinence [Unknown]
  - Blood cholinesterase decreased [Recovered/Resolved]
  - Oxygen saturation decreased [Unknown]
  - Mental impairment [Unknown]
  - Salivary hypersecretion [Unknown]
  - Abdominal pain [Recovered/Resolved]
